FAERS Safety Report 17339865 (Version 3)
Quarter: 2020Q1

REPORT INFORMATION
  Report Type: Other
  Country: PT (occurrence: PT)
  Receive Date: 20200129
  Receipt Date: 20200204
  Transmission Date: 20200409
  Serious: Yes (Hospitalization, Other)
  Sender: FDA-Public Use
  Company Number: PT-MERZ PHARMACEUTICALS GMBH-20-00352

PATIENT
  Age: 59 Year
  Sex: Male

DRUGS (1)
  1. ASCLERA [Suspect]
     Active Substance: POLIDOCANOL
     Indication: HAEMORRHOIDS
     Dosage: 3-10 ML
     Route: 050

REACTIONS (2)
  - Overdose [Unknown]
  - Rectal haemorrhage [Unknown]
